FAERS Safety Report 18968381 (Version 2)
Quarter: 2021Q1

REPORT INFORMATION
  Report Type: Spontaneous
  Country: TR (occurrence: TR)
  Receive Date: 20210304
  Receipt Date: 20210312
  Transmission Date: 20210420
  Serious: Yes (Death, Hospitalization, Other)
  Sender: FDA-Public Use
  Company Number: TR-MYLANLABS-2021M1013377

PATIENT
  Age: 43 Year
  Sex: Female

DRUGS (8)
  1. FLUOROURACIL. [Suspect]
     Active Substance: FLUOROURACIL
     Indication: ADENOCARCINOMA PANCREAS
     Dosage: ADJUVANT MODIFIED FOLFIRINOX REGIMEN WAS GIVEN IN TWO?WEEK CYCLES BETWEEN FEBRUARY 2019 AND MAY 2019
     Route: 065
     Dates: start: 201902, end: 201905
  2. FOLINIC ACID [Suspect]
     Active Substance: LEUCOVORIN
     Indication: BILE DUCT CANCER
  3. OXALIPLATIN. [Suspect]
     Active Substance: OXALIPLATIN
     Indication: ADENOCARCINOMA PANCREAS
     Dosage: ADJUVANT MODIFIED FOLFIRINOX REGIMEN WAS GIVEN IN TWO?WEEK CYCLES BETWEEN FEBRUARY 2019 AND MAY 2019
     Route: 065
     Dates: start: 201902, end: 201905
  4. IRINOTECAN [Suspect]
     Active Substance: IRINOTECAN
     Indication: BILE DUCT CANCER
  5. OXALIPLATIN. [Suspect]
     Active Substance: OXALIPLATIN
     Indication: BILE DUCT CANCER
  6. FOLINIC ACID [Suspect]
     Active Substance: LEUCOVORIN
     Indication: ADENOCARCINOMA PANCREAS
     Dosage: ADJUVANT MODIFIED FOLFIRINOX REGIMEN WAS GIVEN IN TWO?WEEK CYCLES BETWEEN FEBRUARY 2019 AND MAY 2019
     Route: 065
     Dates: start: 201902, end: 201905
  7. FLUOROURACIL. [Suspect]
     Active Substance: FLUOROURACIL
     Indication: BILE DUCT CANCER
  8. IRINOTECAN [Suspect]
     Active Substance: IRINOTECAN
     Indication: ADENOCARCINOMA PANCREAS
     Dosage: ADJUVANT MODIFIED FOLFIRINOX REGIMEN WAS GIVEN IN TWO?WEEK CYCLES BETWEEN FEBRUARY 2019 AND MAY 2019
     Route: 065
     Dates: start: 201902, end: 201905

REACTIONS (4)
  - Septic shock [Fatal]
  - Anaemia [Not Recovered/Not Resolved]
  - Multiple organ dysfunction syndrome [Fatal]
  - Thrombocytopenia [Not Recovered/Not Resolved]

NARRATIVE: CASE EVENT DATE: 2019
